FAERS Safety Report 10206999 (Version 2)
Quarter: 2014Q3

REPORT INFORMATION
  Report Type: Spontaneous
  Country: US (occurrence: US)
  Receive Date: 20140530
  Receipt Date: 20140710
  Transmission Date: 20150326
  Serious: Yes (Disabling, Other)
  Sender: FDA-Public Use
  Company Number: US-SA-2014SA065911

PATIENT
  Sex: Female

DRUGS (2)
  1. LANTUS SOLOSTAR [Suspect]
     Active Substance: INSULIN GLARGINE
     Indication: PRODUCT USED FOR UNKNOWN INDICATION
     Route: 058
     Dates: start: 2012
  2. SOLOSTAR [Concomitant]
     Active Substance: DEVICE

REACTIONS (11)
  - Staphylococcal infection [Unknown]
  - Convulsion [Unknown]
  - Blood glucose abnormal [Unknown]
  - Toe amputation [Unknown]
  - Vascular graft [Unknown]
  - Limb crushing injury [Unknown]
  - Blister [Not Recovered/Not Resolved]
  - Localised infection [Unknown]
  - Drug administration error [Unknown]
  - Cataract operation [Unknown]
  - Off label use [Unknown]

NARRATIVE: CASE EVENT DATE: 2012
